FAERS Safety Report 8380961-9 (Version None)
Quarter: 2012Q2

REPORT INFORMATION
  Report Type: 
  Country: None (occurrence: None)
  Receive Date: 20120523
  Receipt Date: 20120515
  Transmission Date: 20120825
  Serious: Yes (Other)
  Sender: FDA-Public Use
  Company Number: JP-VERTEX PHARMACEUTICALS INC.-AE-2012-004590

PATIENT
  Age: 62 Year
  Sex: Female

DRUGS (17)
  1. TELAVIC (TELAPREVIR) [Suspect]
     Indication: HEPATITIS C
     Route: 048
     Dates: start: 20120207, end: 20120305
  2. REBETOL [Concomitant]
     Indication: HEPATITIS C
     Route: 048
     Dates: start: 20120207, end: 20120227
  3. CANDESARTAN CILEXETIL [Concomitant]
     Route: 048
     Dates: start: 20120316
  4. PEG-INTRON [Concomitant]
     Route: 058
     Dates: start: 20120214, end: 20120220
  5. INSULIN 30 MIX [Concomitant]
     Route: 058
     Dates: start: 20090311
  6. TELAVIC (TELAPREVIR) [Suspect]
     Route: 048
     Dates: start: 20120306, end: 20120312
  7. PEG-INTRON [Concomitant]
     Route: 058
     Dates: start: 20120228
  8. PEG-INTRON [Concomitant]
     Route: 058
  9. TELAVIC (TELAPREVIR) [Suspect]
     Route: 048
     Dates: start: 20120424, end: 20120501
  10. REBETOL [Concomitant]
     Route: 048
     Dates: start: 20120228, end: 20120321
  11. REBETOL [Concomitant]
     Route: 048
     Dates: start: 20120322
  12. PEG-INTRON [Concomitant]
     Route: 058
     Dates: start: 20120221, end: 20120227
  13. DIFLUNISAL [Concomitant]
     Route: 048
     Dates: start: 20110729, end: 20120315
  14. CELESTAMINE TAB [Concomitant]
     Route: 048
     Dates: end: 20120501
  15. TELAVIC (TELAPREVIR) [Suspect]
     Route: 048
     Dates: start: 20120313, end: 20120423
  16. PEG-INTRON [Concomitant]
     Indication: HEPATITIS C
     Route: 058
     Dates: start: 20120207, end: 20120213
  17. PROMACTA [Concomitant]
     Route: 048
     Dates: start: 20110303

REACTIONS (2)
  - DIZZINESS [None]
  - MALAISE [None]
